FAERS Safety Report 8179438-5 (Version None)
Quarter: 2012Q1

REPORT INFORMATION
  Report Type: 
  Country: None (occurrence: None)
  Receive Date: 20120302
  Receipt Date: 20120227
  Transmission Date: 20120608
  Serious: Yes (Death, Other)
  Sender: FDA-Public Use
  Company Number: CHPA2012US003788

PATIENT
  Age: 35 Year
  Sex: Male

DRUGS (8)
  1. DIPHENHYDRAMINE HCL [Suspect]
     Dosage: UNK, UNK
  2. ACETAMINOPHEN [Suspect]
     Dosage: UNK, UNK
  3. HYDROCODONE BITARTRATE [Suspect]
     Dosage: UNK, UNK
  4. DIAZEPAM [Suspect]
     Dosage: UNK, UNK
  5. OXYCODONE HCL [Suspect]
     Dosage: UNK, UNK
  6. ETHANOL [Suspect]
     Dosage: UNK, UNK
  7. DRUG THERAPY NOS [Suspect]
     Dosage: UNK, UNK
  8. PROPOXYPHENE HYDROCHLORIDE [Suspect]
     Dosage: UNK, UNK

REACTIONS (2)
  - COMPLETED SUICIDE [None]
  - CARDIO-RESPIRATORY ARREST [None]
